FAERS Safety Report 12639266 (Version 7)
Quarter: 2016Q4

REPORT INFORMATION
  Report Type: Spontaneous
  Country: US (occurrence: US)
  Receive Date: 20160810
  Receipt Date: 20161209
  Transmission Date: 20170207
  Serious: No
  Sender: FDA-Public Use
  Company Number: US-ACTELION-A-US2016-140217

PATIENT
  Age: 68 Year
  Sex: Female

DRUGS (3)
  1. OPSUMIT [Suspect]
     Active Substance: MACITENTAN
     Indication: PULMONARY ARTERIAL HYPERTENSION
     Dosage: 10 MG, QD
     Route: 048
     Dates: start: 20160701
  2. GABAPENTIN. [Concomitant]
     Active Substance: GABAPENTIN
  3. ADCIRCA [Concomitant]
     Active Substance: TADALAFIL

REACTIONS (22)
  - Dental operation [Unknown]
  - Frequent bowel movements [Unknown]
  - Obsessive-compulsive disorder [Unknown]
  - Feeling abnormal [Unknown]
  - Hyperphagia [Unknown]
  - Back pain [Unknown]
  - Depression [Unknown]
  - Nasal congestion [Unknown]
  - Weight abnormal [Unknown]
  - Feeling jittery [Unknown]
  - Pain in extremity [Unknown]
  - Localised infection [Unknown]
  - Diarrhoea [Unknown]
  - Nervousness [Unknown]
  - Nausea [Unknown]
  - Fibromyalgia [Unknown]
  - Arthritis [Unknown]
  - Abdominal discomfort [Unknown]
  - Arthralgia [Unknown]
  - Bursitis [Unknown]
  - Discomfort [Unknown]
  - Abdominal pain upper [Unknown]
